FAERS Safety Report 4285751-4 (Version None)
Quarter: 2004Q1

REPORT INFORMATION
  Report Type: 
  Country: None (occurrence: None)
  Receive Date: 20040204
  Receipt Date: 20040204
  Transmission Date: 20041129
  Serious: Yes (Hospitalization)
  Sender: FDA-Public Use
  Company Number: None

PATIENT
  Sex: Male
  Weight: 85 kg

DRUGS (1)
  1. NIACIN [Suspect]
     Dosage: 500 MG Q HS ORAL
     Route: 048
     Dates: start: 20030930, end: 20031014

REACTIONS (2)
  - FLUSHING [None]
  - RASH [None]
